FAERS Safety Report 7864351-0 (Version None)
Quarter: 2011Q4

REPORT INFORMATION
  Report Type: 
  Country: None (occurrence: None)
  Receive Date: 20111028
  Receipt Date: 20101207
  Transmission Date: 20120403
  Serious: No
  Sender: FDA-Public Use
  Company Number: US-ASTRAZENECA-2010SE58081

PATIENT
  Sex: Female

DRUGS (2)
  1. TENORETIC 100 [Suspect]
     Dosage: GENERIC, TOTAL DAILY DOSE: 50 MG
     Route: 048
  2. TENORETIC 100 [Suspect]
     Indication: HYPERTENSION
     Dosage: TOTAL DAILY DOSE: 50 MG
     Route: 048

REACTIONS (3)
  - FALL [None]
  - WRIST FRACTURE [None]
  - DIZZINESS [None]
